FAERS Safety Report 14941935 (Version 4)
Quarter: 2020Q1

REPORT INFORMATION
  Report Type: Spontaneous
  Country: JP (occurrence: JP)
  Receive Date: 20180527
  Receipt Date: 20200115
  Transmission Date: 20200409
  Serious: Yes (Hospitalization, Other)
  Sender: FDA-Public Use
  Company Number: JP-AMGEN-JPNSP2018071304

PATIENT
  Age: 69 Year
  Sex: Female

DRUGS (6)
  1. FULVESTRANT. [Concomitant]
     Active Substance: FULVESTRANT
     Indication: DISEASE PROGRESSION
     Dosage: 250 MILLIGRAM, Q4WK
     Route: 030
     Dates: start: 201211, end: 201603
  2. TS-1 [Concomitant]
     Active Substance: GIMERACIL\OTERACIL\TEGAFUR
     Indication: DISEASE PROGRESSION
     Dosage: 50 MG, 2 WEEKS ADMINISTRATION, 1 WEEK INTERRUPTION
     Route: 048
     Dates: start: 201611, end: 201709
  3. ZOLEDRONIC ACID [Suspect]
     Active Substance: ZOLEDRONIC ACID
     Indication: METASTASES TO BONE
     Dosage: 4 MILLIGRAM, Q4WK
     Route: 042
     Dates: start: 200705, end: 201502
  4. RANMARK [Suspect]
     Active Substance: DENOSUMAB
     Indication: METASTASES TO BONE
     Dosage: UNK
     Route: 065
     Dates: start: 201502
  5. ZOLEDRONIC ACID [Suspect]
     Active Substance: ZOLEDRONIC ACID
     Indication: DISEASE PROGRESSION
     Dosage: UNK
     Route: 042
  6. EVEROLIMUS. [Concomitant]
     Active Substance: EVEROLIMUS
     Indication: DISEASE PROGRESSION
     Dosage: 10 MILLIGRAM, QD
     Route: 048
     Dates: start: 201603, end: 201611

REACTIONS (3)
  - Tumour marker increased [Unknown]
  - Atypical femur fracture [Unknown]
  - Infection [Unknown]

NARRATIVE: CASE EVENT DATE: 201611
